FAERS Safety Report 19635936 (Version 2)
Quarter: 2022Q4

REPORT INFORMATION
  Report Type: Spontaneous
  Country: GB (occurrence: GB)
  Receive Date: 20210730
  Receipt Date: 20221128
  Transmission Date: 20230113
  Serious: Yes (Hospitalization)
  Sender: FDA-Public Use
  Company Number: GB-MYLANLABS-2021M1046936

PATIENT
  Age: 40 Year
  Sex: Female

DRUGS (4)
  1. WARFARIN [Suspect]
     Active Substance: WARFARIN
     Indication: Anticoagulant therapy
     Dosage: UNK
     Route: 065
  2. WARFARIN [Suspect]
     Active Substance: WARFARIN
     Indication: Antiphospholipid syndrome
  3. DALTEPARIN [Suspect]
     Active Substance: DALTEPARIN
     Indication: Antiphospholipid syndrome
     Dosage: UNK UNK, BID,10000UNITS
     Route: 065
  4. DALTEPARIN [Suspect]
     Active Substance: DALTEPARIN
     Dosage: UNK UNK, BID,INCREASED TO 12500 AND 10000UNITS
     Route: 065

REACTIONS (1)
  - Drug ineffective [Unknown]
